FAERS Safety Report 15986758 (Version 4)
Quarter: 2019Q2

REPORT INFORMATION
  Report Type: Spontaneous
  Country: AU (occurrence: AU)
  Receive Date: 20190220
  Receipt Date: 20190410
  Transmission Date: 20190711
  Serious: Yes (Other)
  Sender: FDA-Public Use
  Company Number: US-ACTELION-A-NJ2019-186673

PATIENT
  Sex: Female

DRUGS (21)
  1. VENTAVIS [Suspect]
     Active Substance: ILOPROST
     Indication: PRODUCT USED FOR UNKNOWN INDICATION
     Route: 055
  2. OXYGEN. [Concomitant]
     Active Substance: OXYGEN
  3. BIMATOPROST. [Concomitant]
     Active Substance: BIMATOPROST
  4. CITALOPRAM [Concomitant]
     Active Substance: CITALOPRAM HYDROBROMIDE
  5. APIXABAN [Concomitant]
     Active Substance: APIXABAN
  6. EPOPROSTENOL. [Concomitant]
     Active Substance: EPOPROSTENOL
  7. SPIRONOLACTONE. [Concomitant]
     Active Substance: SPIRONOLACTONE
  8. MACITENTAN [Concomitant]
     Active Substance: MACITENTAN
  9. PROBIOTIC [Concomitant]
     Active Substance: PROBIOTICS NOS
  10. SILDENAFIL. [Concomitant]
     Active Substance: SILDENAFIL
  11. COLECALCIFEROL [Concomitant]
     Active Substance: CHOLECALCIFEROL
  12. TAPENTADOL [Concomitant]
     Active Substance: TAPENTADOL
  13. FLUCLOXACILLIN [Concomitant]
     Active Substance: FLUCLOXACILLIN
  14. AMIODARONE [Concomitant]
     Active Substance: AMIODARONE
  15. METOCLOPRAMIDE. [Concomitant]
     Active Substance: METOCLOPRAMIDE
  16. FURSEMIDE [Concomitant]
     Active Substance: FUROSEMIDE
  17. NIZATIDINE. [Concomitant]
     Active Substance: NIZATIDINE
  18. PARACETAMOL [Concomitant]
     Active Substance: ACETAMINOPHEN
  19. MAGNESIUM [Concomitant]
     Active Substance: MAGNESIUM
  20. BRIMONIDINE [Concomitant]
     Active Substance: BRIMONIDINE TARTRATE
  21. PANTOPRAZOLE [Concomitant]
     Active Substance: PANTOPRAZOLE

REACTIONS (10)
  - Hyperkalaemia [Recovered/Resolved]
  - Nausea [Recovered/Resolved]
  - Pulmonary arterial hypertension [Unknown]
  - Hyponatraemia [Unknown]
  - Diarrhoea [Recovered/Resolved]
  - Hypokalaemia [Unknown]
  - Body tinea [Unknown]
  - Atrial flutter [Unknown]
  - Cognitive disorder [Unknown]
  - Thrombophlebitis [Unknown]

NARRATIVE: CASE EVENT DATE: 2014
